FAERS Safety Report 5010490-1 (Version None)
Quarter: 2006Q2

REPORT INFORMATION
  Report Type: 
  Country: None (occurrence: None)
  Receive Date: 20060525
  Receipt Date: 20050627
  Transmission Date: 20061013
  Serious: No
  Sender: FDA-Public Use
  Company Number: US-GLAXOSMITHKLINE-A0564291A

PATIENT
  Age: 47 Year
  Sex: Female

DRUGS (2)
  1. BACTROBAN [Suspect]
     Dosage: 2PCT AS REQUIRED
     Route: 061
     Dates: start: 20050623
  2. KEFLEX [Concomitant]

REACTIONS (2)
  - FEELING HOT [None]
  - VAGINAL ERYTHEMA [None]
